FAERS Safety Report 20474818 (Version 2)
Quarter: 2022Q1

REPORT INFORMATION
  Report Type: Report from Study
  Country: KR (occurrence: KR)
  Receive Date: 20220215
  Receipt Date: 20220228
  Transmission Date: 20220423
  Serious: Yes (Death, Other)
  Sender: FDA-Public Use
  Company Number: KR-BRISTOL-MYERS SQUIBB COMPANY-BMS-2022-022350

PATIENT
  Age: 72 Year
  Sex: Male

DRUGS (2)
  1. IPILIMUMAB [Suspect]
     Active Substance: IPILIMUMAB
     Indication: Malignant melanoma
     Dosage: 1 MILLIGRAM/KILOGRAM
     Route: 042
     Dates: start: 20211014, end: 20211014
  2. OPDIVO [Suspect]
     Active Substance: NIVOLUMAB
     Indication: Malignant melanoma
     Dosage: 3 MILLIGRAM/KILOGRAM
     Route: 042
     Dates: start: 20211014, end: 20211014

REACTIONS (1)
  - Malignant neoplasm progression [Fatal]
